FAERS Safety Report 22156755 (Version 2)
Quarter: 2023Q2

REPORT INFORMATION
  Report Type: Spontaneous
  Country: CA (occurrence: CA)
  Receive Date: 20230330
  Receipt Date: 20230519
  Transmission Date: 20230722
  Serious: Yes (Hospitalization, Other)
  Sender: FDA-Public Use
  Company Number: CA-PFIZER INC-202300130771

PATIENT
  Age: 57 Year
  Sex: Male

DRUGS (2)
  1. RITUXIMAB [Suspect]
     Active Substance: RITUXIMAB
     Indication: Necrotising myositis
     Dosage: 500 MG
     Route: 042
     Dates: start: 2021
  2. RITUXIMAB [Suspect]
     Active Substance: RITUXIMAB
     Dosage: 500 MG
     Route: 042
     Dates: start: 202204

REACTIONS (17)
  - COVID-19 [Recovered/Resolved]
  - Parkinsonism [Unknown]
  - Spinal cord compression [Unknown]
  - Spinal compression fracture [Unknown]
  - Seizure [Unknown]
  - Vomiting [Unknown]
  - Asthenia [Unknown]
  - Weight decreased [Unknown]
  - Pain in extremity [Unknown]
  - Anal incontinence [Unknown]
  - Urinary incontinence [Unknown]
  - Sinusitis [Unknown]
  - Osteoporosis [Unknown]
  - Confusional state [Unknown]
  - Cognitive disorder [Unknown]
  - Nervous system disorder [Unknown]
  - Off label use [Unknown]

NARRATIVE: CASE EVENT DATE: 20210101
